FAERS Safety Report 6819358-9 (Version None)
Quarter: 2010Q3

REPORT INFORMATION
  Report Type: 
  Country: None (occurrence: None)
  Receive Date: 20100707
  Receipt Date: 20100628
  Transmission Date: 20110219
  Serious: Yes (Life-Threatening)
  Sender: FDA-Public Use
  Company Number: JP-JNJFOC-20100602244

PATIENT
  Sex: Female

DRUGS (15)
  1. CRAVIT [Suspect]
     Indication: BRONCHITIS
     Route: 048
  2. GLYBURIDE [Suspect]
     Indication: DIABETES MELLITUS
     Route: 048
  3. DIOVAN HCT [Concomitant]
     Indication: HYPERTENSION
     Route: 048
  4. ADALAT [Concomitant]
     Indication: HYPERTENSION
     Route: 048
  5. ADALAT CC [Concomitant]
     Indication: HYPERTENSION
     Route: 048
  6. MUCOSOLVAN [Concomitant]
     Indication: BRONCHIECTASIS
     Route: 065
  7. WASSER V GRAN. [Concomitant]
     Indication: MALNUTRITION
     Route: 065
  8. WASSER V GRAN. [Concomitant]
     Indication: HYPOVITAMINOSIS
     Route: 065
  9. SIGMART [Concomitant]
     Indication: ANGINA PECTORIS
     Route: 065
  10. DIGOXIN [Concomitant]
     Indication: CARDIAC FAILURE
     Route: 065
  11. TAGAMET [Concomitant]
     Indication: GASTRITIS
     Route: 065
  12. MEDICON [Concomitant]
     Indication: BRONCHITIS
     Route: 065
  13. EMPYNASE P [Concomitant]
     Indication: BRONCHITIS
     Route: 065
  14. SENNARIDE [Concomitant]
     Indication: CONSTIPATION
     Route: 065
  15. FRANDOL [Concomitant]
     Indication: ANGINA PECTORIS
     Route: 065

REACTIONS (1)
  - HYPOGLYCAEMIC COMA [None]
